FAERS Safety Report 8559928-3 (Version None)
Quarter: 2012Q3

REPORT INFORMATION
  Report Type: 
  Country: None (occurrence: None)
  Receive Date: 20120802
  Receipt Date: 20120730
  Transmission Date: 20120928
  Serious: Yes (Other)
  Sender: FDA-Public Use
  Company Number: US-PFIZER INC-2012185322

PATIENT
  Sex: Female
  Weight: 90.703 kg

DRUGS (1)
  1. GABAPENTIN [Suspect]
     Indication: DIABETIC NEUROPATHY
     Dosage: UNK
     Dates: start: 20120101, end: 20120101

REACTIONS (3)
  - PHARYNGEAL OEDEMA [None]
  - HOMICIDAL IDEATION [None]
  - SWOLLEN TONGUE [None]
